FAERS Safety Report 7959165-7 (Version None)
Quarter: 2011Q4

REPORT INFORMATION
  Report Type: 
  Country: None (occurrence: None)
  Receive Date: 20111206
  Receipt Date: 20111007
  Transmission Date: 20120403
  Serious: No
  Sender: FDA-Public Use
  Company Number: US-ABBOTT-11P-163-0718797-00

PATIENT
  Age: 11 Year
  Sex: Female
  Weight: 44.038 kg

DRUGS (1)
  1. OMNICEF [Suspect]
     Indication: PRODUCT USED FOR UNKNOWN INDICATION
     Route: 048

REACTIONS (3)
  - UNDERDOSE [None]
  - OROPHARYNGEAL PAIN [None]
  - STREPTOCOCCAL INFECTION [None]
